FAERS Safety Report 7602217-1 (Version None)
Quarter: 2011Q3

REPORT INFORMATION
  Report Type: 
  Country: None (occurrence: None)
  Receive Date: 20110711
  Receipt Date: 20110701
  Transmission Date: 20111222
  Serious: Yes (Hospitalization, Other)
  Sender: FDA-Public Use
  Company Number: US-ASTRAZENECA-2011SE15476

PATIENT
  Age: 49 Year
  Sex: Female

DRUGS (27)
  1. NEXIUM [Suspect]
     Route: 048
  2. ZOFRAN [Concomitant]
     Indication: NAUSEA
     Route: 048
  3. NEURONTIN [Concomitant]
     Route: 048
  4. MOLDED ORTHOTIC [Concomitant]
     Indication: PLANTAR FASCIITIS
  5. TAMIFLU [Concomitant]
     Route: 048
  6. MS CONTIN [Concomitant]
     Route: 048
  7. XANAX [Concomitant]
     Route: 048
  8. ALBUTEROL SULFATE AUTOHALER [Concomitant]
     Indication: WHEEZING
     Dosage: 90 MCG TWO PUFFS EVERY FOUR HOUR AS NEEDED
     Route: 055
  9. DILAUDID [Concomitant]
     Indication: PAIN
     Route: 048
  10. ANTIVERT [Concomitant]
     Route: 048
  11. ZOFRAN [Concomitant]
     Route: 048
  12. ZOVIRAX [Concomitant]
     Route: 048
  13. SINGULAIR [Concomitant]
     Route: 048
  14. MS CONTIN [Concomitant]
     Route: 048
  15. XANAX [Concomitant]
     Indication: ANXIETY
     Route: 048
  16. DILAUDID [Concomitant]
     Route: 048
  17. ADVAIR HFA [Concomitant]
     Dosage: 230-21 MCG/ACTUATION TWO PUFFS TWICE A DAY
     Route: 055
  18. LIORESAL [Concomitant]
     Dosage: ONE TABLET UP TO THREE TIMES DAILY AS NEEDED
     Route: 048
  19. HYCODAN [Concomitant]
     Dosage: 5-1.5 MG/5ML, 5 ML EVERY 4 HOUR AS NEEDED
     Route: 048
  20. ANTIVERT [Concomitant]
     Indication: DIZZINESS
     Route: 048
  21. PROZAC [Concomitant]
     Route: 048
  22. ZYRTEC [Concomitant]
     Dosage: 1 QHS
  23. VALIUM [Concomitant]
     Route: 048
  24. LIORESAL [Concomitant]
     Route: 048
  25. VALIUM [Concomitant]
     Indication: DIZZINESS
     Route: 048
  26. ASPIRIN [Concomitant]
     Route: 048
  27. LAC-HYDRIN [Concomitant]
     Route: 061

REACTIONS (9)
  - FEMORAL NECK FRACTURE [None]
  - PAIN [None]
  - GROIN PAIN [None]
  - FALL [None]
  - HOSPITALISATION [None]
  - MUSCLE SPASMS [None]
  - BACK PAIN [None]
  - INFLUENZA [None]
  - CONTUSION [None]
